FAERS Safety Report 5720163-5 (Version None)
Quarter: 2008Q2

REPORT INFORMATION
  Report Type: 
  Country: None (occurrence: None)
  Receive Date: 20080428
  Receipt Date: 20070904
  Transmission Date: 20081010
  Serious: No
  Sender: FDA-Public Use
  Company Number: US-AMGEN-US241673

PATIENT
  Sex: Female
  Weight: 84 kg

DRUGS (8)
  1. SENSIPAR [Suspect]
     Indication: HYPERPARATHYROIDISM SECONDARY
     Route: 048
     Dates: start: 20070810, end: 20070829
  2. ISOSORBIDE DINITRATE [Concomitant]
     Route: 065
  3. LOVASTATIN [Concomitant]
     Route: 065
  4. RENAGEL [Concomitant]
     Route: 065
  5. UNSPECIFIED NUTRITIONAL SUPPLEMENT [Concomitant]
     Route: 065
  6. LEVOTHYROXINE SODIUM [Concomitant]
     Route: 065
  7. PRILOSEC [Concomitant]
     Route: 065
  8. DIOVAN [Concomitant]
     Route: 065

REACTIONS (2)
  - PRURITUS [None]
  - RASH [None]
